FAERS Safety Report 18079689 (Version 1)
Quarter: 2020Q3

REPORT INFORMATION
  Report Type: Spontaneous
  Country: TR (occurrence: TR)
  Receive Date: 20200728
  Receipt Date: 20200728
  Transmission Date: 20201103
  Serious: Yes (Life-Threatening, Hospitalization)
  Sender: FDA-Public Use
  Company Number: TR-LUPIN PHARMACEUTICALS INC.-2020-03631

PATIENT
  Age: 15 Year
  Sex: Female

DRUGS (15)
  1. CALCIUM [Suspect]
     Active Substance: CALCIUM
     Indication: TOXICITY TO VARIOUS AGENTS
     Dosage: 15 MILLILITER, EVERY 4 HOURS
     Route: 065
  2. SODIUM CHLORIDE. [Suspect]
     Active Substance: SODIUM CHLORIDE
     Indication: TOXICITY TO VARIOUS AGENTS
     Dosage: 1500 MILLILITER
     Route: 065
  3. ADRENALINE [EPINEPHRINE] [Suspect]
     Active Substance: EPINEPHRINE
     Dosage: REDUCED UP TO 0.2 MCG/KG/MIN
     Route: 042
  4. VERAPAMIL [Suspect]
     Active Substance: VERAPAMIL HYDROCHLORIDE
     Indication: SUICIDE ATTEMPT
     Dosage: 8 DOSAGE FORM, TOTAL (OVERDOSE)
     Route: 048
  5. NORADRENALINE (NORPINEPHRINE) [Suspect]
     Active Substance: NOREPINEPHRINE
     Dosage: INCREASED UP TO 0.3 MCG/KG/MIN
     Route: 050
  6. GLUCAGON. [Suspect]
     Active Substance: GLUCAGON
     Indication: TOXICITY TO VARIOUS AGENTS
     Dosage: 0.5 MILLIGRAM, BID
     Route: 030
  7. ADRENALINE [EPINEPHRINE] [Suspect]
     Active Substance: EPINEPHRINE
     Indication: TOXICITY TO VARIOUS AGENTS
     Dosage: 0.1 MCG/KG/MIN
     Route: 042
  8. GLUCOSE [Suspect]
     Active Substance: DEXTROSE
     Indication: TOXICITY TO VARIOUS AGENTS
     Dosage: 8 MG/KG/MIN
     Route: 065
  9. DOBUTAMINE [Suspect]
     Active Substance: DOBUTAMINE HYDROCHLORIDE
     Indication: TOXICITY TO VARIOUS AGENTS
     Dosage: 10 MCG/KG/MIN
     Route: 065
  10. NORADRENALINE (NORPINEPHRINE) [Suspect]
     Active Substance: NOREPINEPHRINE
     Dosage: REDUCED UP TO 0.2 MCG/KG/MIN
     Route: 050
  11. HEPARIN [Concomitant]
     Active Substance: HEPARIN SODIUM
     Indication: ANTICOAGULANT THERAPY
     Dosage: LOADING DOSE: 50 UNIT/KG
     Route: 042
  12. NORADRENALINE (NORPINEPHRINE) [Suspect]
     Active Substance: NOREPINEPHRINE
     Indication: TOXICITY TO VARIOUS AGENTS
     Dosage: UNK
     Route: 065
  13. HEPARIN [Concomitant]
     Active Substance: HEPARIN SODIUM
     Dosage: MAINTENANCE DOSE: 10 UNIT/KG/H
     Route: 042
  14. ADRENALINE [EPINEPHRINE] [Suspect]
     Active Substance: EPINEPHRINE
     Dosage: INCREASED UP TO 0.3 MCG/KG/MIN
     Route: 042
  15. INSULIN CRYSTALINE [Suspect]
     Active Substance: INSULIN PORK\INSULIN PURIFIED PORK
     Indication: TOXICITY TO VARIOUS AGENTS
     Dosage: 0.1 UNIT/KG/H
     Route: 048

REACTIONS (1)
  - Drug ineffective [Unknown]
